FAERS Safety Report 8307527-0 (Version None)
Quarter: 2012Q2

REPORT INFORMATION
  Report Type: 
  Country: None (occurrence: None)
  Receive Date: 20120424
  Receipt Date: 20120417
  Transmission Date: 20120825
  Serious: Yes (Hospitalization)
  Sender: FDA-Public Use
  Company Number: US-GILEAD-2012-0053454

PATIENT
  Sex: Female

DRUGS (19)
  1. OXYGEN [Concomitant]
  2. TORSEMIDE [Concomitant]
  3. LACTULOSE [Concomitant]
  4. ZOLPIDEM TARTRATE [Concomitant]
  5. LETAIRIS [Suspect]
     Indication: PULMONARY ARTERIAL HYPERTENSION
     Dosage: 5 MG, UNK
     Route: 048
     Dates: start: 20081218
  6. VENTAVIS [Concomitant]
  7. EPZICOM [Concomitant]
  8. REVATIO [Concomitant]
  9. ALDACTONE [Concomitant]
  10. ISENTRESS [Concomitant]
  11. AMITRIPTYLINE HCL [Concomitant]
  12. DURAGESIC-100 [Concomitant]
  13. AZITHROMYCIN [Concomitant]
  14. METHADONE HCL [Concomitant]
  15. COLACE [Concomitant]
  16. VIREAD [Concomitant]
  17. OXYCODONE HCL [Concomitant]
  18. SENNA                              /00571902/ [Concomitant]
  19. BACTRIM [Concomitant]

REACTIONS (3)
  - CARDIAC FAILURE CONGESTIVE [None]
  - LIVER DISORDER [None]
  - PULMONARY HYPERTENSION [None]
